FAERS Safety Report 21942457 (Version 1)
Quarter: 2023Q1

REPORT INFORMATION
  Report Type: Report from Study
  Country: US (occurrence: US)
  Receive Date: 20230202
  Receipt Date: 20230202
  Transmission Date: 20230418
  Serious: No
  Sender: FDA-Public Use
  Company Number: US-EXELIXIS-CABO-22057618

PATIENT
  Sex: Male

DRUGS (1)
  1. CABOMETYX [Suspect]
     Active Substance: CABOZANTINIB S-MALATE
     Indication: Hepatocellular carcinoma
     Dosage: 60 MG, QD
     Route: 048

REACTIONS (11)
  - Oropharyngeal blistering [Recovering/Resolving]
  - Tongue blistering [Recovering/Resolving]
  - Ageusia [Unknown]
  - Skin ulcer [Recovering/Resolving]
  - Diarrhoea [Not Recovered/Not Resolved]
  - Blood pressure increased [Recovered/Resolved]
  - Rash macular [Recovering/Resolving]
  - Dysphonia [Recovering/Resolving]
  - Nausea [Unknown]
  - Decreased appetite [Unknown]
  - Oral mucosal blistering [Recovering/Resolving]
